FAERS Safety Report 4705484-7 (Version None)
Quarter: 2005Q2

REPORT INFORMATION
  Report Type: 
  Country: None (occurrence: None)
  Receive Date: 20050630
  Receipt Date: 20050630
  Transmission Date: 20051028
  Serious: Yes (Other)
  Sender: FDA-Public Use
  Company Number: None

PATIENT
  Age: 77 Year
  Sex: Male
  Weight: 86.2 kg

DRUGS (9)
  1. LOPRESSOR [Suspect]
     Dosage: 25MG, X 1 DOSE, BY MOUTH
     Route: 048
     Dates: start: 20040609, end: 20040609
  2. NOVOLIN R [Concomitant]
  3. TRAZODONE HCL (DESYREL) [Concomitant]
  4. FLUNISOLIDE (AEROBID) [Concomitant]
  5. HYDROXYZINE [Concomitant]
  6. ACETAMINOPHEN [Concomitant]
  7. IPRATROPIUM (ATROVENT) [Concomitant]
  8. PRILOSEC [Concomitant]
  9. AMPICILLIN/SULBACTAM NA [Concomitant]

REACTIONS (2)
  - BRONCHOSPASM [None]
  - DYSPNOEA [None]
